FAERS Safety Report 8085557-4 (Version None)
Quarter: 2012Q1

REPORT INFORMATION
  Report Type: 
  Country: None (occurrence: None)
  Receive Date: 20120128
  Receipt Date: 20110418
  Transmission Date: 20120608
  Serious: No
  Sender: FDA-Public Use
  Company Number: US-ABBOTT-11P-163-0714629-00

PATIENT
  Sex: Female
  Weight: 45.4 kg

DRUGS (4)
  1. FISH OIL [Concomitant]
     Indication: SUPPLEMENTATION THERAPY
  2. CRESTOR [Concomitant]
     Indication: BLOOD CHOLESTEROL INCREASED
  3. HUMIRA [Suspect]
     Indication: CROHN'S DISEASE
     Dates: start: 20110201, end: 20110401
  4. CALCIUM [Concomitant]
     Indication: PRODUCT USED FOR UNKNOWN INDICATION
     Dosage: OVER THE COUNTER

REACTIONS (5)
  - DRY SKIN [None]
  - RASH [None]
  - RASH PAPULAR [None]
  - PSORIASIS [None]
  - RASH PRURITIC [None]
